FAERS Safety Report 5454109-4 (Version None)
Quarter: 2007Q3

REPORT INFORMATION
  Report Type: 
  Country: None (occurrence: None)
  Receive Date: 20070917
  Receipt Date: 20061207
  Transmission Date: 20080115
  Serious: No
  Sender: FDA-Public Use
  Company Number: US-ASTRAZENECA-2006UW10541

PATIENT
  Sex: Female

DRUGS (2)
  1. SEROQUEL [Suspect]
     Indication: BIPOLAR DISORDER
  2. LEXAPRO [Concomitant]

REACTIONS (3)
  - PARAESTHESIA [None]
  - SPINAL DISORDER [None]
  - STOMACH DISCOMFORT [None]
